FAERS Safety Report 5158352-3 (Version None)
Quarter: 2006Q4

REPORT INFORMATION
  Report Type: 
  Country: None (occurrence: None)
  Receive Date: 20061128
  Receipt Date: 20061122
  Transmission Date: 20070319
  Serious: Yes (Death)
  Sender: FDA-Public Use
  Company Number: PHEH2006US14560

PATIENT
  Age: 36 Year
  Sex: Male

DRUGS (3)
  1. PHENYTOIN SODIUM CAP [Concomitant]
  2. KETOROLAC TROMETHAMINE [Concomitant]
  3. CLOZARIL [Suspect]
     Indication: SCHIZOPHRENIA

REACTIONS (3)
  - BRAIN NEOPLASM [None]
  - MENTAL STATUS CHANGES [None]
  - POST PROCEDURAL COMPLICATION [None]
